FAERS Safety Report 5087959-7 (Version None)
Quarter: 2006Q3

REPORT INFORMATION
  Report Type: 
  Country: None (occurrence: None)
  Receive Date: 20060822
  Receipt Date: 20060822
  Transmission Date: 20061208
  Serious: Yes (Hospitalization)
  Sender: FDA-Public Use
  Company Number: None

PATIENT
  Sex: Female
  Weight: 58.4 kg

DRUGS (14)
  1. FENTANYL [Suspect]
     Indication: OSTEOARTHRITIS
     Dosage: 1 PATCH (100 MCG/HR) Q 72 HOURS 061
     Dates: start: 20060711, end: 20060723
  2. ALPRAZOLAM [Concomitant]
  3. MECLIZINE [Concomitant]
  4. AMBIEN [Concomitant]
  5. TRAZODONE HCL [Concomitant]
  6. CELEBREX [Concomitant]
  7. DITROPAN XL [Concomitant]
  8. ADALAT CC [Concomitant]
  9. LEVOTHYROXINE SODIUM [Concomitant]
  10. ALBUTEROL [Concomitant]
  11. PROZAC [Concomitant]
  12. ADVAIR DISKUS 100/50 [Concomitant]
  13. PROTONIX [Concomitant]
  14. LASIX [Concomitant]

REACTIONS (7)
  - DIARRHOEA [None]
  - FOOD POISONING [None]
  - INADEQUATE ANALGESIA [None]
  - NAUSEA [None]
  - OVERDOSE [None]
  - RESPIRATORY DISTRESS [None]
  - VOMITING [None]
